FAERS Safety Report 6434154-2 (Version None)
Quarter: 2009Q4

REPORT INFORMATION
  Report Type: 
  Country: None (occurrence: None)
  Receive Date: 20091110
  Receipt Date: 20090629
  Transmission Date: 20100525
  Serious: No
  Sender: FDA-Public Use
  Company Number: US-ASTRAZENECA-2009SE10201

PATIENT
  Sex: Female

DRUGS (5)
  1. PRILOSEC OTC [Suspect]
     Dosage: 1 TABLET, 1 PER DAY
     Route: 048
     Dates: start: 20090511, end: 20090629
  2. ASPIRIN [Concomitant]
     Dosage: UNKNOWN
  3. FORTEO [Concomitant]
  4. CITRUCEL D [Concomitant]
     Dosage: UNKNOWN
  5. VITAMINS [Concomitant]
     Dosage: UNKNOWN

REACTIONS (3)
  - BLOOD PRESSURE INCREASED [None]
  - HEADACHE [None]
  - INCORRECT DRUG ADMINISTRATION DURATION [None]
